FAERS Safety Report 8457828-0 (Version None)
Quarter: 2012Q2

REPORT INFORMATION
  Report Type: 
  Country: None (occurrence: None)
  Receive Date: 20120618
  Receipt Date: 20120618
  Transmission Date: 20120825
  Serious: Yes (Hospitalization)
  Sender: FDA-Public Use
  Company Number: None

PATIENT
  Age: 82 Year
  Sex: Male
  Weight: 72.7 kg

DRUGS (1)
  1. PREDNISONE TAB [Suspect]
     Dosage: MG PO
     Route: 048
     Dates: start: 20120518, end: 20120531

REACTIONS (2)
  - MENTAL STATUS CHANGES [None]
  - SUBSTANCE-INDUCED PSYCHOTIC DISORDER [None]
